FAERS Safety Report 22533256 (Version 3)
Quarter: 2025Q3

REPORT INFORMATION
  Report Type: Spontaneous
  Country: US (occurrence: US)
  Receive Date: 20230607
  Receipt Date: 20250725
  Transmission Date: 20251021
  Serious: No
  Sender: AMGEN
  Company Number: US-AMGEN-USASP2023096913

PATIENT
  Age: 67 Year
  Sex: Female

DRUGS (13)
  1. OTEZLA [Suspect]
     Active Substance: APREMILAST
     Indication: Psoriasis
     Dosage: 30 MILLIGRAM, BID
     Route: 048
  2. OTEZLA [Suspect]
     Active Substance: APREMILAST
     Dosage: 30 MILLIGRAM, BID
     Route: 048
  3. OTEZLA [Suspect]
     Active Substance: APREMILAST
     Dosage: 30 MILLIGRAM, BID
     Route: 048
  4. STELARA [Concomitant]
     Active Substance: USTEKINUMAB
  5. METFORMIN HYDROCHLORIDE [Concomitant]
     Active Substance: METFORMIN HYDROCHLORIDE
  6. NORVASC [Concomitant]
     Active Substance: AMLODIPINE BESYLATE
  7. TENORMIN [Concomitant]
     Active Substance: ATENOLOL
  8. FLEXERIL [Concomitant]
     Active Substance: CYCLOBENZAPRINE HYDROCHLORIDE
  9. CETIRIZINE HCL [Concomitant]
     Active Substance: CETIRIZINE HYDROCHLORIDE
  10. QUINAPRIL [Concomitant]
     Active Substance: QUINAPRIL
  11. DOXYCYCLINE HYCLATE [Concomitant]
     Active Substance: DOXYCYCLINE HYCLATE
  12. CEPHALEXIN [Concomitant]
     Active Substance: CEPHALEXIN
  13. FLUOCINONIDE [Concomitant]
     Active Substance: FLUOCINONIDE

REACTIONS (4)
  - Blister [Unknown]
  - Adverse event [Unknown]
  - Therapy interrupted [Unknown]
  - Rash [Unknown]

NARRATIVE: CASE EVENT DATE: 20250101
